FAERS Safety Report 18525975 (Version 1)
Quarter: 2020Q4

REPORT INFORMATION
  Report Type: Spontaneous
  Country: DE (occurrence: DE)
  Receive Date: 20201120
  Receipt Date: 20201120
  Transmission Date: 20210114
  Serious: Yes (Hospitalization)
  Sender: FDA-Public Use
  Company Number: DE-TEVA-2020-DE-1850052

PATIENT
  Age: 2 Year
  Sex: Male
  Weight: 12 kg

DRUGS (2)
  1. PREDNISOLON [Suspect]
     Active Substance: PREDNISOLONE
     Route: 065
     Dates: start: 20200902
  2. ZOLGENSMA [Suspect]
     Active Substance: ONASEMNOGENE ABEPARVOVEC-XIOI
     Indication: SPINAL MUSCULAR ATROPHY
     Dates: start: 20200902

REACTIONS (2)
  - Drug interaction [Unknown]
  - Hepatic enzyme increased [Not Recovered/Not Resolved]
